FAERS Safety Report 16698749 (Version 1)
Quarter: 2019Q3

REPORT INFORMATION
  Report Type: Spontaneous
  Country: US (occurrence: US)
  Receive Date: 20190813
  Receipt Date: 20190813
  Transmission Date: 20191004
  Serious: Yes (Other)
  Sender: FDA-Public Use
  Company Number: US-TEVA-2019-US-1090562

PATIENT
  Age: 3 Month
  Sex: Female

DRUGS (2)
  1. PROPRANOLOL [Suspect]
     Active Substance: PROPRANOLOL HYDROCHLORIDE
     Indication: INFANTILE HAEMANGIOMA
     Dosage: 2 MG/KG DAILY; FROM WEEK 2 TO WEEK 5
     Route: 065
  2. HEMANGEOL [Suspect]
     Active Substance: PROPRANOLOL HYDROCHLORIDE
     Indication: INFANTILE HAEMANGIOMA
     Dosage: 2.5 MG/KG DAILY; FROM WEEK 6 TO WEEK 17
     Route: 065

REACTIONS (3)
  - Diarrhoea [Unknown]
  - Sleep terror [Recovered/Resolved]
  - Condition aggravated [Recovered/Resolved]
